FAERS Safety Report 23318865 (Version 2)
Quarter: 2024Q1

REPORT INFORMATION
  Report Type: Spontaneous
  Country: DE (occurrence: DE)
  Receive Date: 20231220
  Receipt Date: 20240130
  Transmission Date: 20240410
  Serious: Yes (Other)
  Sender: FDA-Public Use
  Company Number: DE-BRISTOL-MYERS SQUIBB COMPANY-2023-183538

PATIENT
  Age: 81 Year
  Sex: Female
  Weight: 82 kg

DRUGS (2)
  1. ELIQUIS [Suspect]
     Active Substance: APIXABAN
     Indication: Tachyarrhythmia
     Route: 048
     Dates: start: 20231028, end: 20231127
  2. ELIQUIS [Suspect]
     Active Substance: APIXABAN
     Route: 048
     Dates: start: 20231212, end: 20240124

REACTIONS (2)
  - Off label use [Unknown]
  - Osteoarthritis [Unknown]
